FAERS Safety Report 15317719 (Version 1)
Quarter: 2018Q3

REPORT INFORMATION
  Report Type: Spontaneous
  Country: FR (occurrence: FR)
  Receive Date: 20180824
  Receipt Date: 20180824
  Transmission Date: 20181010
  Serious: Yes (Life-Threatening)
  Sender: FDA-Public Use
  Company Number: FR-ANIPHARMA-2018-FR-000131

PATIENT
  Age: 66 Year
  Sex: Female

DRUGS (5)
  1. CANDESARTAN HCT [Suspect]
     Active Substance: CANDESARTAN CILEXETIL\HYDROCHLOROTHIAZIDE
     Indication: HYPERTENSION
     Dosage: 1 DF DAILY
     Route: 048
     Dates: end: 20171106
  2. METFORMINE [Suspect]
     Active Substance: METFORMIN HYDROCHLORIDE
     Dosage: 3 DF DAILY
     Route: 048
     Dates: end: 20171106
  3. INEXIUM [Suspect]
     Active Substance: ESOMEPRAZOLE
     Dosage: 1 DF DAILY
     Route: 048
     Dates: end: 20171106
  4. CRESTOR [Suspect]
     Active Substance: ROSUVASTATIN CALCIUM
     Dosage: 1 DF DAILY
     Route: 048
     Dates: end: 20171106
  5. TERCIAN [Suspect]
     Active Substance: CYAMEMAZINE
     Dosage: 15 GTT DAILY
     Route: 048
     Dates: end: 20171106

REACTIONS (3)
  - Hyperkalaemia [Unknown]
  - Acute kidney injury [Unknown]
  - Vasoplegia syndrome [Unknown]

NARRATIVE: CASE EVENT DATE: 20171106
